FAERS Safety Report 10015491 (Version 5)
Quarter: 2016Q1

REPORT INFORMATION
  Report Type: Spontaneous
  Country: US (occurrence: US)
  Receive Date: 20140317
  Receipt Date: 20160226
  Transmission Date: 20160525
  Serious: Yes (Hospitalization, Other)
  Sender: FDA-Public Use
  Company Number: US-009507513-1403USA005842

PATIENT
  Sex: Female
  Weight: 55.33 kg

DRUGS (6)
  1. FOSAMAX [Suspect]
     Active Substance: ALENDRONATE SODIUM
     Indication: OSTEOPENIA
     Dosage: 70 MG, QW
     Route: 048
     Dates: start: 20010206, end: 20090326
  2. FOSAMAX [Suspect]
     Active Substance: ALENDRONATE SODIUM
     Indication: OSTEOPOROSIS PROPHYLAXIS
  3. ALENDRONATE SODIUM. [Suspect]
     Active Substance: ALENDRONATE SODIUM
     Dosage: 70 MG, UNKNOWN
     Route: 048
     Dates: start: 20080923, end: 20090610
  4. CALCIUM (UNSPECIFIED) [Concomitant]
     Active Substance: CALCIUM
     Dosage: 1000 MG, UNKNOWN
     Route: 048
     Dates: start: 1999
  5. ESTROGEN NOS [Concomitant]
     Active Substance: ESTROGENS
     Dosage: UNK, UNKNOWN
     Route: 048
     Dates: start: 1996
  6. ALENDRONATE SODIUM. [Suspect]
     Active Substance: ALENDRONATE SODIUM
     Indication: OSTEOPOROSIS PROPHYLAXIS
     Dosage: 70 MG, QW
     Route: 048
     Dates: start: 20090721, end: 20100212

REACTIONS (20)
  - Tooth extraction [Unknown]
  - Osteoporosis [Unknown]
  - Seasonal allergy [Unknown]
  - Seborrhoeic dermatitis [Unknown]
  - Medical device removal [Unknown]
  - Femur fracture [Unknown]
  - Osteoarthritis [Unknown]
  - Pharyngitis [Unknown]
  - Muscular weakness [Unknown]
  - Femur fracture [Recovered/Resolved]
  - Stress fracture [Unknown]
  - Contusion [Unknown]
  - Impaired healing [Unknown]
  - Arthralgia [Unknown]
  - Fall [Unknown]
  - Femur fracture [Unknown]
  - Bone disorder [Unknown]
  - Large intestine polyp [Unknown]
  - Pain [Unknown]
  - Hyperlipidaemia [Unknown]

NARRATIVE: CASE EVENT DATE: 200107
